FAERS Safety Report 11793160 (Version 1)
Quarter: 2015Q4

REPORT INFORMATION
  Report Type: Spontaneous
  Country: US (occurrence: None)
  Receive Date: 20151201
  Receipt Date: 20151201
  Transmission Date: 20160305
  Serious: Yes (Death)
  Sender: FDA-Public Use
  Company Number: None

PATIENT
  Age: 53 Year
  Sex: Male

DRUGS (2)
  1. PLAVIX [Suspect]
     Active Substance: CLOPIDOGREL BISULFATE
     Indication: CEREBROVASCULAR ACCIDENT
     Dosage: ONE  QD  ORAL
     Route: 048
  2. ASPIRIN 81MG [Suspect]
     Active Substance: ASPIRIN
     Indication: CEREBROVASCULAR ACCIDENT
     Dosage: ONE  QD  ORAL
     Route: 048

REACTIONS (4)
  - Urinary incontinence [None]
  - Faecal incontinence [None]
  - Vomiting [None]
  - Haemorrhage intracranial [None]

NARRATIVE: CASE EVENT DATE: 20151124
